FAERS Safety Report 7277206-X (Version None)
Quarter: 2011Q1

REPORT INFORMATION
  Report Type: 
  Country: None (occurrence: None)
  Receive Date: 20110131
  Receipt Date: 20110119
  Transmission Date: 20110831
  Serious: Yes (Hospitalization)
  Sender: FDA-Public Use
  Company Number: 025788

PATIENT
  Sex: Female
  Weight: 68 kg

DRUGS (13)
  1. TERTENSIF [Concomitant]
  2. ASPENTER [Concomitant]
  3. DIGOXIN [Concomitant]
  4. MADOPAR /00349201/ [Concomitant]
  5. AMARYL [Concomitant]
  6. NEBIVOLOL HCL [Concomitant]
  7. RIVOTRIL [Concomitant]
  8. ROTIGOTINE (ROTIGOTINE) [Suspect]
     Indication: PARKINSON'S DISEASE
     Dosage: (2 MG QD) ; (4 MG QD) ; (6 MG QD) ; (8 MG QD)
     Dates: start: 20100817, end: 20100822
  9. ROTIGOTINE (ROTIGOTINE) [Suspect]
     Indication: PARKINSON'S DISEASE
     Dosage: (2 MG QD) ; (4 MG QD) ; (6 MG QD) ; (8 MG QD)
     Dates: start: 20100811, end: 20100816
  10. ROTIGOTINE (ROTIGOTINE) [Suspect]
     Indication: PARKINSON'S DISEASE
     Dosage: (2 MG QD) ; (4 MG QD) ; (6 MG QD) ; (8 MG QD)
     Dates: start: 20100829
  11. ROTIGOTINE (ROTIGOTINE) [Suspect]
     Indication: PARKINSON'S DISEASE
     Dosage: (2 MG QD) ; (4 MG QD) ; (6 MG QD) ; (8 MG QD)
     Dates: start: 20100823, end: 20100828
  12. PREDUCTAL /00489601/ [Concomitant]
  13. LOSARTAN POTASSIUM [Concomitant]

REACTIONS (2)
  - NAUSEA [None]
  - GASTRITIS [None]
